FAERS Safety Report 17553073 (Version 2)
Quarter: 2021Q2

REPORT INFORMATION
  Report Type: Spontaneous
  Country: US (occurrence: US)
  Receive Date: 20200318
  Receipt Date: 20210423
  Transmission Date: 20210716
  Serious: No
  Sender: FDA-Public Use
  Company Number: US-AMGEN-USASP2020041681

PATIENT
  Age: 32 Year
  Sex: Female
  Weight: 83 kg

DRUGS (4)
  1. NEUPOGEN [Suspect]
     Active Substance: FILGRASTIM
     Indication: POST TRANSPLANT LYMPHOPROLIFERATIVE DISORDER
  2. PROGRAF [Concomitant]
     Active Substance: TACROLIMUS
     Dosage: 1 MILLIGRAM, 3 CAPSULES EVERY MORNING AND 2 CAPSULES EVERY EVENING (12 HOURS APART)
     Route: 065
  3. NEUPOGEN [Suspect]
     Active Substance: FILGRASTIM
     Indication: NEUTROPENIA
     Dosage: 480 MICROGRAM, 3 DAYS OF TREATMENT THEN WAITING A WEEK OR TWO AND THEN 4 DAYS OF TREATMENT IN A ROW
     Route: 065
     Dates: start: 20200203
  4. IMITREX [Concomitant]
     Active Substance: SUMATRIPTAN SUCCINATE
     Dosage: 50 MILLIGRAM, 1 TABLET, CAN REPEAT UP TO 200MG IN 24 HOURS
     Route: 065

REACTIONS (2)
  - Off label use [Unknown]
  - Maternal exposure during pregnancy [Unknown]

NARRATIVE: CASE EVENT DATE: 2020
